FAERS Safety Report 18123597 (Version 5)
Quarter: 2022Q1

REPORT INFORMATION
  Report Type: Spontaneous
  Country: CZ (occurrence: CZ)
  Receive Date: 20200807
  Receipt Date: 20220126
  Transmission Date: 20220423
  Serious: Yes (Other)
  Sender: FDA-Public Use
  Company Number: CZ-STADA-203479

PATIENT
  Age: 62 Year
  Sex: Male

DRUGS (29)
  1. DICLOFENAC [Suspect]
     Active Substance: DICLOFENAC
     Indication: Depression
     Dosage: 200 MG, WE (200 MG, QW (100-200 MG, PER WEEK))
     Route: 065
  2. DICLOFENAC [Suspect]
     Active Substance: DICLOFENAC
     Indication: Pain
  3. ACETAMINOPHEN\TRAMADOL [Suspect]
     Active Substance: ACETAMINOPHEN\TRAMADOL
     Indication: Depression
     Dosage: AT A DOSE OF UP TO 225 MG TRAMADOL (PARACETAMOL DOSE UNKNOWN)
     Route: 065
  4. ACETAMINOPHEN\TRAMADOL [Suspect]
     Active Substance: ACETAMINOPHEN\TRAMADOL
     Indication: Breakthrough pain
  5. ACETAMINOPHEN\TRAMADOL [Suspect]
     Active Substance: ACETAMINOPHEN\TRAMADOL
     Indication: Pain
  6. LACTULOSE [Suspect]
     Active Substance: LACTULOSE
     Indication: Constipation
     Dosage: UNK
     Route: 065
  7. LACTULOSE [Suspect]
     Active Substance: LACTULOSE
     Dosage: 9 DF, QD
     Route: 065
  8. TRAMADOL HYDROCHLORIDE [Suspect]
     Active Substance: TRAMADOL HYDROCHLORIDE
     Indication: Pain
     Dosage: 500 MG, QD
     Route: 065
  9. CITALOPRAM [Suspect]
     Active Substance: CITALOPRAM HYDROBROMIDE
     Indication: Depression
     Dosage: UNK
     Route: 016
  10. BUPRENORPHINE [Suspect]
     Active Substance: BUPRENORPHINE
     Indication: Pain
     Dosage: UNK
     Route: 062
  11. PREGABALIN [Suspect]
     Active Substance: PREGABALIN
     Indication: Pain
     Dosage: UNK
     Route: 065
  12. PREGABALIN [Suspect]
     Active Substance: PREGABALIN
     Indication: Pain management
  13. OXYCODONE [Suspect]
     Active Substance: OXYCODONE
     Indication: Pain
     Dosage: UNK
     Route: 065
  14. FENTANYL [Suspect]
     Active Substance: FENTANYL
     Indication: Pain
     Dosage: UNK
     Route: 062
  15. GABAPENTIN [Suspect]
     Active Substance: GABAPENTIN
     Indication: Pain
     Dosage: UNK
     Route: 065
  16. GABAPENTIN [Suspect]
     Active Substance: GABAPENTIN
     Indication: Analgesic therapy
  17. NALOXONE HYDROCHLORIDE\OXYCODONE HYDROCHLORIDE [Suspect]
     Active Substance: NALOXONE HYDROCHLORIDE\OXYCODONE HYDROCHLORIDE
     Indication: Pain
     Dosage: UNK
     Route: 016
  18. DULOXETINE [Suspect]
     Active Substance: DULOXETINE
     Indication: Product used for unknown indication
     Dosage: UNK
     Route: 016
  19. TRAZODONE [Suspect]
     Active Substance: TRAZODONE HYDROCHLORIDE
     Indication: Depression
     Dosage: UNK
     Route: 016
  20. POLYETHYLENE GLYCOLS [Suspect]
     Active Substance: POLYETHYLENE GLYCOLS
     Indication: Constipation
     Dosage: UNK (4000 SOMETIMES (1-2 TIMES PER WEEK))
     Route: 016
  21. TAPENTADOL [Suspect]
     Active Substance: TAPENTADOL
     Indication: Analgesic therapy
     Dosage: 400 MG, QD (200 MILLIGRAM, 2/DAY)
     Route: 016
  22. TAPENTADOL [Suspect]
     Active Substance: TAPENTADOL
     Indication: Pain
  23. VENLAFAXINE [Suspect]
     Active Substance: VENLAFAXINE HYDROCHLORIDE
     Indication: Product used for unknown indication
     Dosage: UNK
     Route: 016
  24. BISACODYL [Concomitant]
     Active Substance: BISACODYL
     Indication: Constipation
     Dosage: 1-2 TIMES PER WEEK
     Route: 065
  25. ACETAMINOPHEN [Concomitant]
     Active Substance: ACETAMINOPHEN
     Indication: Product used for unknown indication
     Dosage: UNK
     Route: 065
  26. SODIUM PICOSULFATE [Concomitant]
     Active Substance: SODIUM PICOSULFATE
     Indication: Product used for unknown indication
     Dosage: UNK
     Route: 065
  27. SODIUM BISULFITE [Concomitant]
     Active Substance: SODIUM BISULFITE
     Indication: Constipation
     Dosage: UNK (20 DROP, AS NEEDED)
     Route: 065
  28. SODIUM BISULFITE [Concomitant]
     Active Substance: SODIUM BISULFITE
     Dosage: 10 MG, QD (10 MG OR 20 DROPS IN THE EVENING)
     Route: 065
  29. NALOXEGOL OXALATE [Concomitant]
     Active Substance: NALOXEGOL OXALATE
     Indication: Product used for unknown indication
     Dosage: 25 MG, QD
     Route: 065

REACTIONS (17)
  - Application site hypersensitivity [Unknown]
  - Application site reaction [Unknown]
  - Headache [Unknown]
  - Weight increased [Unknown]
  - Mental impairment [Unknown]
  - Constipation [Recovered/Resolved]
  - Dry mouth [Unknown]
  - Flatulence [Unknown]
  - Intentional overdose [Unknown]
  - Drug ineffective [Unknown]
  - Nausea [Unknown]
  - Functional gastrointestinal disorder [Recovering/Resolving]
  - Quality of life decreased [Recovering/Resolving]
  - Sedation [Unknown]
  - Abdominal pain [Unknown]
  - Vomiting [Unknown]
  - Condition aggravated [Unknown]
